FAERS Safety Report 6607590-9 (Version None)
Quarter: 2010Q1

REPORT INFORMATION
  Report Type: 
  Country: None (occurrence: None)
  Receive Date: 20100301
  Receipt Date: 20100219
  Transmission Date: 20100710
  Serious: Yes (Other)
  Sender: FDA-Public Use
  Company Number: CHPA2010US03854

PATIENT
  Sex: Male

DRUGS (1)
  1. MAALOX TOTAL RELEIF (NCH) [Suspect]
     Indication: FLATULENCE
     Dosage: UNK, UNK
     Route: 048

REACTIONS (3)
  - DRUG LABEL CONFUSION [None]
  - FAECES DISCOLOURED [None]
  - GASTRIC ULCER HAEMORRHAGE [None]
